FAERS Safety Report 16150306 (Version 8)
Quarter: 2020Q3

REPORT INFORMATION
  Report Type: Report from Study
  Country: US (occurrence: US)
  Receive Date: 20190402
  Receipt Date: 20200710
  Transmission Date: 20201102
  Serious: Yes (Hospitalization, Other)
  Sender: FDA-Public Use
  Company Number: PHHY2019US074020

PATIENT
  Age: 42 Year
  Sex: Female
  Weight: 57 kg

DRUGS (5)
  1. DITROPAN [Concomitant]
     Active Substance: OXYBUTYNIN CHLORIDE
     Indication: BLADDER SPASM
     Dosage: UNK UNK, PRN
     Route: 065
  2. OXYBUTYNIN. [Concomitant]
     Active Substance: OXYBUTYNIN CHLORIDE
     Indication: BLADDER SPASM
     Dosage: UNK
     Route: 065
     Dates: start: 20190309, end: 20190312
  3. GILENYA [Suspect]
     Active Substance: FINGOLIMOD HYDROCHLORIDE
     Indication: MULTIPLE SCLEROSIS
     Dosage: 0.5 MG, QD
     Route: 048
     Dates: start: 20181018, end: 20190307
  4. DILAUDID [Concomitant]
     Active Substance: HYDROMORPHONE HYDROCHLORIDE
     Indication: HYDRONEPHROSIS
     Dosage: UNK
     Route: 065
     Dates: start: 20190307, end: 20190307
  5. HEPARIN [Concomitant]
     Active Substance: HEPARIN SODIUM
     Indication: THROMBOSIS PROPHYLAXIS
     Dosage: UNK
     Route: 065
     Dates: start: 20190308, end: 20190309

REACTIONS (23)
  - Dysuria [Unknown]
  - Pyrexia [Recovered/Resolved]
  - Conjunctivitis bacterial [Recovered/Resolved]
  - Papule [Not Recovered/Not Resolved]
  - Flank pain [Recovered/Resolved]
  - Abdominal pain [Unknown]
  - Urinary tract infection [Recovered/Resolved]
  - Bronchitis [Recovered/Resolved]
  - Lymphopenia [Not Recovered/Not Resolved]
  - Haemangioma [Unknown]
  - Fatigue [Not Recovered/Not Resolved]
  - Sepsis [Recovered/Resolved]
  - Weight decreased [Unknown]
  - Upper respiratory tract infection [Recovered/Resolved]
  - Eczema [Not Recovered/Not Resolved]
  - Normocytic anaemia [Recovered/Resolved]
  - Ureterolithiasis [Recovered/Resolved]
  - Gastroenteritis norovirus [Recovered/Resolved]
  - Benign neoplasm of skin [Not Recovered/Not Resolved]
  - Fibrous histiocytoma [Not Recovered/Not Resolved]
  - Medical device pain [Recovered/Resolved]
  - Hydronephrosis [Unknown]
  - Pyuria [Unknown]

NARRATIVE: CASE EVENT DATE: 20181022
